FAERS Safety Report 14561787 (Version 3)
Quarter: 2018Q3

REPORT INFORMATION
  Report Type: Spontaneous
  Country: US (occurrence: US)
  Receive Date: 20180222
  Receipt Date: 20180712
  Transmission Date: 20181010
  Serious: No
  Sender: FDA-Public Use
  Company Number: US-PFIZER INC-2018074802

PATIENT
  Age: 56 Year
  Sex: Female

DRUGS (1)
  1. IBRANCE [Suspect]
     Active Substance: PALBOCICLIB
     Indication: BREAST CANCER FEMALE
     Dosage: 125 MG, CYCLIC (DAILY FOR 21 DAYS ONE WEEK OFF)
     Route: 048
     Dates: start: 20180122

REACTIONS (4)
  - Pruritus [Unknown]
  - Fatigue [Unknown]
  - Nausea [Unknown]
  - Breast mass [Unknown]

NARRATIVE: CASE EVENT DATE: 201802
